FAERS Safety Report 9455202 (Version 1)
Quarter: 2013Q3

REPORT INFORMATION
  Report Type: Spontaneous
  Country: US (occurrence: US)
  Receive Date: 20130813
  Receipt Date: 20130813
  Transmission Date: 20140515
  Serious: No
  Sender: FDA-Public Use
  Company Number: US-FOUGERA-2013FO000050

PATIENT
  Sex: Male

DRUGS (4)
  1. LIDOCAINE [Suspect]
     Indication: ARTHRALGIA
     Route: 061
  2. LIDOCAINE [Suspect]
     Indication: NEURALGIA
  3. SOLARAZE [Suspect]
     Indication: JOINT SWELLING
     Route: 061
  4. XANAX [Concomitant]
     Indication: PRODUCT USED FOR UNKNOWN INDICATION

REACTIONS (3)
  - Application site pain [Not Recovered/Not Resolved]
  - Application site exfoliation [Not Recovered/Not Resolved]
  - Off label use [Not Recovered/Not Resolved]
